FAERS Safety Report 7911740-1 (Version None)
Quarter: 2011Q4

REPORT INFORMATION
  Report Type: 
  Country: None (occurrence: None)
  Receive Date: 20111114
  Receipt Date: 20111114
  Transmission Date: 20120403
  Serious: Yes (Life-Threatening, Hospitalization)
  Sender: FDA-Public Use
  Company Number: None

PATIENT
  Age: 58 Year
  Sex: Female
  Weight: 85 kg

DRUGS (13)
  1. ALENDRONATE SODIUM [Concomitant]
  2. OYSTER SHELL CALCIUM [Concomitant]
  3. CELLCEPT [Suspect]
     Indication: SCLERODERMA
     Dosage: 500 MG
     Route: 048
  4. ALLOPURINOL [Concomitant]
  5. GLIMEPIRIDE [Concomitant]
  6. ENOXAPARIN [Concomitant]
  7. PREDNISONE [Concomitant]
  8. WARFARIN SODIUM [Concomitant]
  9. FLUTICASONE PROPIONATE [Concomitant]
  10. LANSOPRAZOLE [Concomitant]
  11. CERTIRIZINE [Concomitant]
  12. AMLODIPINE [Concomitant]
  13. SERTRALINE HYDROCHLORIDE [Concomitant]

REACTIONS (3)
  - LOSS OF CONSCIOUSNESS [None]
  - CONVULSION [None]
  - CONFUSIONAL STATE [None]
